FAERS Safety Report 5095849-9 (Version None)
Quarter: 2006Q3

REPORT INFORMATION
  Report Type: 
  Country: None (occurrence: None)
  Receive Date: 20060905
  Receipt Date: 20060817
  Transmission Date: 20061208
  Serious: Yes (Hospitalization)
  Sender: FDA-Public Use
  Company Number: PHEH2006US10572

PATIENT
  Age: 31 Year
  Sex: Female
  Weight: 50.793 kg

DRUGS (2)
  1. EXJADE [Suspect]
     Dosage: UNK MG, BID
     Route: 048
     Dates: start: 20060717, end: 20060818
  2. FOLIC ACID [Concomitant]
     Dosage: 1 MG, QD

REACTIONS (5)
  - BLOOD CREATININE INCREASED [None]
  - BLOOD UREA INCREASED [None]
  - CHEST PAIN [None]
  - RENAL FAILURE ACUTE [None]
  - URINE OUTPUT DECREASED [None]
